APPROVED DRUG PRODUCT: ONSURA
Active Ingredient: ETHINYL ESTRADIOL; NORELGESTROMIN
Strength: 0.035MG/24HR;0.15MG/24HR
Dosage Form/Route: FILM, EXTENDED RELEASE;TRANSDERMAL
Application: A213977 | Product #001 | TE Code: AB
Applicant: TEVA PHARMACEUTICALS USA INC
Approved: Aug 25, 2021 | RLD: No | RS: No | Type: RX